FAERS Safety Report 17606920 (Version 1)
Quarter: 2020Q1

REPORT INFORMATION
  Report Type: Spontaneous
  Country: US (occurrence: US)
  Receive Date: 20200331
  Receipt Date: 20200331
  Transmission Date: 20200409
  Serious: No
  Sender: FDA-Public Use
  Company Number: US-TEVA-2020-US-1212727

PATIENT
  Sex: Female

DRUGS (1)
  1. LIDOCAINE W/PRILOCAINE [Suspect]
     Active Substance: LIDOCAINE\PRILOCAINE
     Indication: DIALYSIS
     Route: 065

REACTIONS (2)
  - Drug ineffective [Unknown]
  - Product physical consistency issue [Unknown]
